FAERS Safety Report 18084616 (Version 2)
Quarter: 2021Q2

REPORT INFORMATION
  Report Type: Report from Study
  Country: BR (occurrence: BR)
  Receive Date: 20200728
  Receipt Date: 20210420
  Transmission Date: 20210717
  Serious: No
  Sender: FDA-Public Use
  Company Number: PHHY2018BR133153

PATIENT
  Age: 67 Year
  Sex: Male
  Weight: 98 kg

DRUGS (4)
  1. COSENTYX [Suspect]
     Active Substance: SECUKINUMAB
     Indication: PSORIATIC ARTHROPATHY
     Dosage: UNK
     Route: 065
     Dates: start: 20180125
  2. COSENTYX [Suspect]
     Active Substance: SECUKINUMAB
     Dosage: 300 MG, QMO
     Route: 058
     Dates: start: 20181016
  3. COSENTYX [Suspect]
     Active Substance: SECUKINUMAB
     Dosage: 300 MG, QMO
     Route: 058
     Dates: start: 20180424
  4. COSENTYX [Suspect]
     Active Substance: SECUKINUMAB
     Dosage: 2 AMPOULES, QMO
     Route: 065
     Dates: start: 2018

REACTIONS (14)
  - SARS-CoV-2 test positive [Recovered/Resolved]
  - Pruritus [Recovered/Resolved]
  - Macule [Recovering/Resolving]
  - Stress [Unknown]
  - Malaise [Recovered/Resolved]
  - Anosmia [Recovered/Resolved]
  - Skin lesion [Unknown]
  - Pain [Recovered/Resolved]
  - Ageusia [Recovered/Resolved]
  - Skin exfoliation [Recovering/Resolving]
  - Drug ineffective [Not Recovered/Not Resolved]
  - Depressed mood [Recovered/Resolved]
  - Headache [Recovered/Resolved]
  - Panic reaction [Unknown]

NARRATIVE: CASE EVENT DATE: 20200425
